FAERS Safety Report 7568308-9 (Version None)
Quarter: 2011Q2

REPORT INFORMATION
  Report Type: 
  Country: None (occurrence: None)
  Receive Date: 20110623
  Receipt Date: 20110609
  Transmission Date: 20111010
  Serious: Yes (Hospitalization)
  Sender: FDA-Public Use
  Company Number: CA-JNJFOC-20110605948

PATIENT
  Sex: Female

DRUGS (3)
  1. REMICADE [Suspect]
     Indication: CROHN'S DISEASE
     Route: 042
     Dates: start: 20110505
  2. REMICADE [Suspect]
     Dosage: PT TO HAVE ONE DOSE ONLY OF 800MG DATE OF ADMINISTRATION NOT SPECIFIED.
     Route: 042
  3. REMICADE [Suspect]
     Dosage: SOURCE DOCUMENT STATED AUG20/11 FOR START DATE, CHANGED TO 2010.
     Route: 042
     Dates: start: 20100820

REACTIONS (2)
  - KNEE ARTHROPLASTY [None]
  - PAIN [None]
